FAERS Safety Report 8330082-6 (Version None)
Quarter: 2012Q2

REPORT INFORMATION
  Report Type: 
  Country: None (occurrence: None)
  Receive Date: 20120502
  Receipt Date: 20120426
  Transmission Date: 20120825
  Serious: Yes (Hospitalization)
  Sender: FDA-Public Use
  Company Number: FR-PFIZER INC-2012103224

PATIENT
  Age: 28 Year
  Sex: Female

DRUGS (2)
  1. SOLACY [Concomitant]
     Dosage: 1 DF, 3X/DAY
     Route: 048
     Dates: start: 20120101, end: 20120114
  2. IBUPROFEN + PSEUDOEPHEDRINE HCL [Suspect]
     Dosage: UNK
     Route: 048
     Dates: start: 20120111, end: 20120114

REACTIONS (1)
  - PANCREATITIS ACUTE [None]
